FAERS Safety Report 4579165-7 (Version None)
Quarter: 2005Q1

REPORT INFORMATION
  Report Type: 
  Country: None (occurrence: None)
  Receive Date: 20050208
  Receipt Date: 20050208
  Transmission Date: 20050727
  Serious: Yes (Death)
  Sender: FDA-Public Use
  Company Number: None

PATIENT
  Sex: Male
  Weight: 81.6475 kg

DRUGS (1)
  1. DESFERAL [Suspect]
     Indication: BLOOD IRON INCREASED
     Dates: start: 20020301, end: 20020330

REACTIONS (2)
  - CONDITION AGGRAVATED [None]
  - PAROXYSMAL NOCTURNAL HAEMOGLOBINURIA [None]
